FAERS Safety Report 10041818 (Version 2)
Quarter: 2014Q2

REPORT INFORMATION
  Report Type: Spontaneous
  Country: US (occurrence: US)
  Receive Date: 20140327
  Receipt Date: 20140403
  Transmission Date: 20141212
  Serious: Yes (Other)
  Sender: FDA-Public Use
  Company Number: US-BAXTER-2014BAX015122

PATIENT
  Sex: Female

DRUGS (2)
  1. DIANEAL LOW CALCIUM [Suspect]
     Indication: PERITONEAL DIALYSIS
     Route: 033
  2. DIANEAL LOW CALCIUM [Suspect]
     Indication: PERITONEAL DIALYSIS
     Route: 033

REACTIONS (6)
  - Cardiac disorder [Recovering/Resolving]
  - Post procedural haemorrhage [Unknown]
  - Haemoglobin decreased [Recovering/Resolving]
  - Wrong drug administered [Unknown]
  - Hypotension [Recovering/Resolving]
  - Dehydration [Recovering/Resolving]
